FAERS Safety Report 6623951-6 (Version None)
Quarter: 2010Q1

REPORT INFORMATION
  Report Type: 
  Country: None (occurrence: None)
  Receive Date: 20100305
  Receipt Date: 20100226
  Transmission Date: 20100710
  Serious: Yes (Hospitalization)
  Sender: FDA-Public Use
  Company Number: TCI2009A05253

PATIENT
  Age: 86 Year
  Sex: Female

DRUGS (6)
  1. TAKEPRON OD TABLETS 30 (LANSOPRAZOLE) [Suspect]
     Indication: GASTRIC ULCER HAEMORRHAGE
     Dosage: 30 MG (30 MG, 1 IN 1 D), PER ORAL; 30 MG (30 MG, 1 IN 1 D),PER ORAL
     Route: 048
     Dates: start: 20030603, end: 20091218
  2. TAKEPRON OD TABLETS 30 (LANSOPRAZOLE) [Suspect]
     Indication: PROPHYLAXIS
     Dosage: 30 MG (30 MG, 1 IN 1 D), PER ORAL; 30 MG (30 MG, 1 IN 1 D),PER ORAL
     Route: 048
     Dates: start: 20030603, end: 20091218
  3. TAKEPRON OD TABLETS 30 (LANSOPRAZOLE) [Suspect]
     Indication: GASTRIC ULCER HAEMORRHAGE
     Dosage: 30 MG (30 MG, 1 IN 1 D), PER ORAL; 30 MG (30 MG, 1 IN 1 D),PER ORAL
     Route: 048
     Dates: start: 20031226
  4. TAKEPRON OD TABLETS 30 (LANSOPRAZOLE) [Suspect]
     Indication: PROPHYLAXIS
     Dosage: 30 MG (30 MG, 1 IN 1 D), PER ORAL; 30 MG (30 MG, 1 IN 1 D),PER ORAL
     Route: 048
     Dates: start: 20031226
  5. PRAVASTATIN [Concomitant]
  6. SELBEX (TEPRENONE) [Concomitant]

REACTIONS (1)
  - GASTRIC ULCER HAEMORRHAGE [None]
